FAERS Safety Report 10548345 (Version 1)
Quarter: 2014Q4

REPORT INFORMATION
  Report Type: Spontaneous
  Country: US (occurrence: None)
  Receive Date: 20141015
  Receipt Date: 20141015
  Transmission Date: 20150529
  Serious: No
  Sender: FDA-Public Use
  Company Number: 2014US003608

PATIENT
  Age: 52 Year
  Sex: Female

DRUGS (1)
  1. ICLUSIG [Suspect]
     Active Substance: PONATINIB
     Indication: CHRONIC MYELOID LEUKAEMIA
     Route: 048

REACTIONS (9)
  - Cardiac disorder [None]
  - Vaginal disorder [None]
  - Skin mass [None]
  - Vitreous floaters [None]
  - Rash papular [None]
  - Vision blurred [None]
  - Fluid retention [None]
  - Photophobia [None]
  - Melanocytic naevus [None]
